FAERS Safety Report 7311866-X (Version None)
Quarter: 2011Q1

REPORT INFORMATION
  Report Type: 
  Country: None (occurrence: None)
  Receive Date: 20110215
  Receipt Date: 20110215
  Transmission Date: 20110831
  Serious: Yes (Hospitalization)
  Sender: FDA-Public Use
  Company Number: None

PATIENT
  Age: 43 Year
  Sex: Female
  Weight: 115.9 kg

DRUGS (8)
  1. DEPAKOTE [Suspect]
     Indication: CONVULSION
     Dosage: 1GM QAM PO  CHRONIC
     Route: 048
  2. VESICARE [Concomitant]
  3. POTASSIUM CHLORIDE [Concomitant]
  4. CRESTOR [Concomitant]
  5. LEVOTHYROXINE [Concomitant]
  6. DEPAKOTE [Suspect]
     Indication: CONVULSION
     Dosage: 500MG X3 BID PO CHRONIC
     Route: 048
  7. LAMICTAL [Concomitant]
  8. LASIX [Concomitant]

REACTIONS (5)
  - ANTICONVULSANT DRUG LEVEL ABOVE THERAPEUTIC [None]
  - ATAXIA [None]
  - SYNCOPE [None]
  - DIZZINESS [None]
  - THROMBOCYTOPENIA [None]
